FAERS Safety Report 16645460 (Version 1)
Quarter: 2019Q3

REPORT INFORMATION
  Report Type: Report from Study
  Country: US (occurrence: US)
  Receive Date: 20190729
  Receipt Date: 20190729
  Transmission Date: 20191004
  Serious: Yes (Death, Other)
  Sender: FDA-Public Use
  Company Number: US-BRISTOL-MYERS SQUIBB COMPANY-BMS-2019-074401

PATIENT
  Age: 66 Year
  Sex: Male
  Weight: 89.1 kg

DRUGS (2)
  1. CETUXIMAB. [Suspect]
     Active Substance: CETUXIMAB
     Indication: OROPHARYNGEAL SQUAMOUS CELL CARCINOMA
     Dosage: 1065 MILLIGRAM, Q2WK
     Route: 042
     Dates: start: 20181128, end: 20190709
  2. NIVOLUMAB [Suspect]
     Active Substance: NIVOLUMAB
     Indication: OROPHARYNGEAL SQUAMOUS CELL CARCINOMA
     Dosage: 240 MILLIGRAM, Q2WK
     Route: 042
     Dates: start: 20181128, end: 20190709

REACTIONS (1)
  - Death [Fatal]

NARRATIVE: CASE EVENT DATE: 20190725
